FAERS Safety Report 4855480-4 (Version None)
Quarter: 2005Q4

REPORT INFORMATION
  Report Type: 
  Country: None (occurrence: None)
  Receive Date: 20051216
  Receipt Date: 20050525
  Transmission Date: 20060501
  Serious: Yes (Death)
  Sender: FDA-Public Use
  Company Number: GB-BOEHRINGER INGELHEIM PHARMACEUTICALS, INC.-2005-UK-00919UK

PATIENT
  Age: 77 Year
  Sex: Male
  Weight: 89 kg

DRUGS (7)
  1. MOBIC [Suspect]
     Indication: OSTEOARTHRITIS
     Route: 048
     Dates: start: 20050510
  2. CO-CODAMOL [Concomitant]
     Indication: OSTEOARTHRITIS
     Dosage: 8/500MG X 2 FOUR TIMES DAILY
     Route: 048
     Dates: start: 20040101
  3. COMBIVENT [Concomitant]
     Indication: CHRONIC OBSTRUCTIVE PULMONARY DISEASE
     Route: 055
  4. FRUSEMIDE [Concomitant]
     Indication: HYPERTENSION
     Route: 065
     Dates: start: 20040101
  5. FRUSEMIDE [Concomitant]
     Indication: MYOCARDIAL ISCHAEMIA
  6. RAMIPRIL [Concomitant]
     Indication: MYOCARDIAL ISCHAEMIA
     Route: 065
     Dates: start: 20040101
  7. RAMIPRIL [Concomitant]
     Indication: HYPERTENSION

REACTIONS (9)
  - ARTERIOSCLEROSIS CORONARY ARTERY [None]
  - CORONARY ARTERY DISEASE [None]
  - CORONARY ARTERY OCCLUSION [None]
  - PULMONARY CONGESTION [None]
  - PULMONARY OEDEMA [None]
  - RENAL ARTERY ARTERIOSCLEROSIS [None]
  - RENAL ATROPHY [None]
  - RENAL ISCHAEMIA [None]
  - VENTRICULAR HYPERTROPHY [None]
